FAERS Safety Report 20605306 (Version 1)
Quarter: 2022Q1

REPORT INFORMATION
  Report Type: Report from Study
  Country: CO (occurrence: CO)
  Receive Date: 20220317
  Receipt Date: 20220317
  Transmission Date: 20220423
  Serious: Yes (Hospitalization)
  Sender: FDA-Public Use
  Company Number: CO-AMGEN-COLSL2022043474

PATIENT
  Age: 82 Year
  Sex: Female

DRUGS (1)
  1. ADALIMUMAB [Suspect]
     Active Substance: ADALIMUMAB
     Indication: Product used for unknown indication
     Dosage: 40 MILLIGRAM, Q2WK (EVERY 15 DAYS)
     Route: 058

REACTIONS (5)
  - Erythema [Unknown]
  - Feeling hot [Unknown]
  - Skin lesion [Unknown]
  - Flushing [Unknown]
  - Pain in extremity [Unknown]
